FAERS Safety Report 22327757 (Version 2)
Quarter: 2024Q2

REPORT INFORMATION
  Report Type: Spontaneous
  Country: US (occurrence: US)
  Receive Date: 20230516
  Receipt Date: 20240531
  Transmission Date: 20240716
  Serious: No
  Sender: FDA-Public Use
  Company Number: US-RADIUS HEALTH INC.-2023US002068

PATIENT
  Age: 92 Year
  Sex: Male

DRUGS (1)
  1. TYMLOS [Suspect]
     Active Substance: ABALOPARATIDE
     Indication: Traumatic fracture
     Dosage: 80 MICROGRAM, QD
     Route: 058
     Dates: start: 202304, end: 20230430

REACTIONS (7)
  - Gait disturbance [Not Recovered/Not Resolved]
  - Movement disorder [Recovering/Resolving]
  - Abdominal discomfort [Unknown]
  - Dyspnoea [Not Recovered/Not Resolved]
  - Mood altered [Recovering/Resolving]
  - Malaise [Recovering/Resolving]
  - Product use in unapproved indication [Recovered/Resolved]

NARRATIVE: CASE EVENT DATE: 20230401
